FAERS Safety Report 8959530 (Version 2)
Quarter: 2014Q4

REPORT INFORMATION
  Report Type: Spontaneous
  Country: US (occurrence: US)
  Receive Date: 20121212
  Receipt Date: 20141003
  Transmission Date: 20150529
  Serious: Yes (Other)
  Sender: FDA-Public Use
  Company Number: US-ROCHE-1164976

PATIENT
  Sex: Female

DRUGS (9)
  1. HERCEPTIN [Suspect]
     Active Substance: TRASTUZUMAB
     Indication: PRODUCT USED FOR UNKNOWN INDICATION
     Route: 065
  2. VINORELBINE TARTRATE. [Concomitant]
     Active Substance: VINORELBINE TARTRATE
  3. LAPATINIB [Suspect]
     Active Substance: LAPATINIB
     Indication: BRAIN CANCER METASTATIC
     Route: 048
     Dates: start: 200702
  4. LOMOTIL (UNITED STATES) [Concomitant]
  5. ERYTHROMYCIN. [Concomitant]
     Active Substance: ERYTHROMYCIN
  6. VENLAFAXINE HYDROCHLORIDE. [Concomitant]
     Active Substance: VENLAFAXINE HYDROCHLORIDE
  7. ONDANSETRON HCL [Concomitant]
     Active Substance: ONDANSETRON HYDROCHLORIDE
  8. CAPECITABINE. [Suspect]
     Active Substance: CAPECITABINE
     Indication: BREAST CANCER
     Route: 065
  9. ESOMEPRAZOLE [Concomitant]
     Active Substance: ESOMEPRAZOLE

REACTIONS (10)
  - Nausea [Recovered/Resolved]
  - Visual acuity reduced [Unknown]
  - Blister [Unknown]
  - Rash [Unknown]
  - Breast cancer recurrent [Unknown]
  - Vomiting [Unknown]
  - Fatigue [Unknown]
  - Rash pruritic [Unknown]
  - Product quality issue [Unknown]
  - Diarrhoea [Unknown]
